FAERS Safety Report 8124991-0 (Version None)
Quarter: 2012Q1

REPORT INFORMATION
  Report Type: 
  Country: None (occurrence: None)
  Receive Date: 20120209
  Receipt Date: 20120206
  Transmission Date: 20120608
  Serious: Yes (Other)
  Sender: FDA-Public Use
  Company Number: US-PFIZER INC-2012032760

PATIENT
  Sex: Female
  Weight: 40 kg

DRUGS (15)
  1. NEURONTIN [Suspect]
     Indication: NERVE INJURY
     Dosage: 400 MG, 4X/DAY
     Dates: start: 19940101, end: 20120205
  2. CELEBREX [Suspect]
     Indication: BIPOLAR DISORDER
  3. PROMETHAZINE [Concomitant]
     Dosage: 25 MG, AS NEEDED
  4. MORPHINE [Concomitant]
     Dosage: 15 MG, 3X/DAY
  5. XANAX [Suspect]
     Indication: NERVE INJURY
     Dosage: 0.5 MG, 3X/DAY
     Dates: start: 20110101, end: 20110601
  6. LASIX [Concomitant]
     Indication: CARDIAC FAILURE CONGESTIVE
     Dosage: 20 MG, AS NEEDED
  7. METOPROLOL [Concomitant]
     Dosage: 50 MG, 2X/DAY
  8. ACETYLSALICYLIC ACID [Concomitant]
     Dosage: 325 MG, UNK
  9. XANAX [Suspect]
     Indication: CHRONIC OBSTRUCTIVE PULMONARY DISEASE
  10. KLOR-CON [Concomitant]
     Dosage: 10 MG, UNK
  11. PLAVIX [Concomitant]
     Dosage: 75 MG, DAILY
  12. XANAX [Suspect]
     Indication: PANIC ATTACK
     Dosage: 1 MG, 3X/DAY
     Dates: start: 20110601
  13. PREVACID [Concomitant]
     Dosage: UNK, 4X/DAY
  14. CELEBREX [Suspect]
     Indication: DEPRESSION
     Dosage: 10 MG, DAILY
     Dates: start: 20110601
  15. SIMVASTATIN [Concomitant]
     Indication: BLOOD CHOLESTEROL ABNORMAL
     Dosage: 80 MG, DAILY

REACTIONS (3)
  - THROMBOSIS [None]
  - ANGIOPATHY [None]
  - BLOOD PRESSURE FLUCTUATION [None]
